FAERS Safety Report 19460412 (Version 1)
Quarter: 2021Q2

REPORT INFORMATION
  Report Type: Spontaneous
  Country: NL (occurrence: NL)
  Receive Date: 20210625
  Receipt Date: 20210625
  Transmission Date: 20210717
  Serious: Yes (Hospitalization)
  Sender: FDA-Public Use
  Company Number: NL-TEVA-2021-NL-1925288

PATIENT
  Sex: Female
  Weight: 68 kg

DRUGS (3)
  1. METHOTREXAAT INJECTIE/INFUUS / BRAND NAME NOT SPECIFIED [Concomitant]
     Dosage: INJECTION/INFUSION , THERAPY START AND END DATE: ASKU
  2. DICLOFENAC?NATRIUM TABLET MGA  75MG / BRAND NAME NOT SPECIFIED [Suspect]
     Active Substance: DICLOFENAC SODIUM
     Indication: PAIN
     Dosage: 150 MILLIGRAM DAILY;
     Route: 065
     Dates: start: 201812, end: 2020
  3. PREDNISOLON INJVLST 12,5MG/ML / BRAND NAME NOT SPECIFIED [Concomitant]
     Dosage: THERAPY START AND END DATE: ASKU

REACTIONS (1)
  - Cardiac arrest [Recovered/Resolved]
